FAERS Safety Report 22104944 (Version 2)
Quarter: 2023Q2

REPORT INFORMATION
  Report Type: Spontaneous
  Country: US (occurrence: US)
  Receive Date: 20230316
  Receipt Date: 20230407
  Transmission Date: 20230722
  Serious: No
  Sender: FDA-Public Use
  Company Number: US-IDORSIA-003943-2023-US

PATIENT
  Age: 46 Year
  Sex: Female

DRUGS (5)
  1. QUVIVIQ [Suspect]
     Active Substance: DARIDOREXANT
     Indication: Poor quality sleep
     Dosage: 50 MG, QD
     Route: 048
     Dates: start: 20220701, end: 20230115
  2. QUVIVIQ [Suspect]
     Active Substance: DARIDOREXANT
     Indication: Nightmare
  3. VENLAFAXINE [Concomitant]
     Active Substance: VENLAFAXINE HYDROCHLORIDE
     Indication: Depression
     Dosage: 225 MG
  4. VENLAFAXINE [Concomitant]
     Active Substance: VENLAFAXINE HYDROCHLORIDE
     Indication: Anxiety
  5. LAMOTRIGINE [Concomitant]
     Active Substance: LAMOTRIGINE
     Indication: Depression
     Dosage: 200 MG

REACTIONS (5)
  - Off label use [Unknown]
  - Therapeutic response unexpected [Unknown]
  - Nightmare [Unknown]
  - Concomitant disease aggravated [Unknown]
  - Product availability issue [Unknown]

NARRATIVE: CASE EVENT DATE: 20220701
